FAERS Safety Report 17144451 (Version 3)
Quarter: 2019Q4

REPORT INFORMATION
  Report Type: Spontaneous
  Country: US (occurrence: US)
  Receive Date: 20191212
  Receipt Date: 20191230
  Transmission Date: 20200122
  Serious: No
  Sender: FDA-Public Use
  Company Number: US-PFIZER INC-2019535126

PATIENT
  Age: 70 Year
  Sex: Male
  Weight: 86.17 kg

DRUGS (2)
  1. ATENOLOL. [Concomitant]
     Active Substance: ATENOLOL
     Indication: BLOOD PRESSURE ABNORMAL
     Dosage: 50 MG, 2X/DAY
  2. ATORVASTATIN CALCIUM. [Suspect]
     Active Substance: ATORVASTATIN CALCIUM
     Indication: BLOOD CHOLESTEROL INCREASED
     Dosage: 10 MG, 1X/DAY (ONCE A DAY)

REACTIONS (6)
  - Stomatitis [Unknown]
  - Drug hypersensitivity [Unknown]
  - Throat irritation [Unknown]
  - Reaction to excipient [Unknown]
  - Visual acuity reduced [Unknown]
  - Cheilitis [Unknown]
